FAERS Safety Report 11555932 (Version 2)
Quarter: 2015Q4

REPORT INFORMATION
  Report Type: Spontaneous
  Country: US (occurrence: US)
  Receive Date: 20150925
  Receipt Date: 20151203
  Transmission Date: 20160304
  Serious: Yes (Hospitalization, Other)
  Sender: FDA-Public Use
  Company Number: US-PFIZER INC-2015315335

PATIENT
  Age: 83 Year
  Sex: Male
  Weight: 95 kg

DRUGS (8)
  1. NITROSTAT [Concomitant]
     Active Substance: NITROGLYCERIN
     Dosage: 0.4 MG, AS NEEDED
  2. LYRICA [Suspect]
     Active Substance: PREGABALIN
     Indication: DIABETIC NEUROPATHY
     Dosage: 200 MG, 3X/DAY
     Route: 048
     Dates: start: 20140703
  3. ZENPEP [Concomitant]
     Active Substance: PANCRELIPASE\PANCRELIPASE AMYLASE\PANCRELIPASE LIPASE\PANCRELIPASE PROTEASE
     Indication: PANCREATIC DISORDER
     Dosage: 20,000 UNITS1 DF, 3X/DAY
  4. BABY ASPIRIN [Concomitant]
     Active Substance: ASPIRIN
     Dosage: 1 DF, 1X/DAY
  5. SERTRALINE [Concomitant]
     Active Substance: SERTRALINE HYDROCHLORIDE
     Indication: AFFECTIVE DISORDER
     Dosage: 50 MG, 1X/DAY, AT BEDTIME
  6. LEVOTHYROXINE. [Concomitant]
     Active Substance: LEVOTHYROXINE
     Indication: THYROID DISORDER
     Dosage: 50 MCG 1 TABLET DAILY
  7. OMEPRAZOLE. [Concomitant]
     Active Substance: OMEPRAZOLE
     Indication: GASTRIC DISORDER
     Dosage: 40 MG, 1X/DAY
     Route: 048
  8. LYRICA [Suspect]
     Active Substance: PREGABALIN
     Indication: NEUROPATHY PERIPHERAL

REACTIONS (1)
  - Abdominal infection [Recovering/Resolving]
